FAERS Safety Report 17374736 (Version 8)
Quarter: 2021Q3

REPORT INFORMATION
  Report Type: Spontaneous
  Country: US (occurrence: US)
  Receive Date: 20200205
  Receipt Date: 20210723
  Transmission Date: 20211014
  Serious: No
  Sender: FDA-Public Use
  Company Number: US-PFIZER INC-2019357946

PATIENT
  Age: 64 Year
  Sex: Female
  Weight: 84 kg

DRUGS (3)
  1. EFFEXOR XR [Suspect]
     Active Substance: VENLAFAXINE HYDROCHLORIDE
     Indication: DEPRESSION
     Dosage: 75 MG, DAILY (BEST IF TAKEN WITH FOOD, SWALLOW WHOLE)
     Route: 048
  2. EFFEXOR XR [Suspect]
     Active Substance: VENLAFAXINE HYDROCHLORIDE
     Dosage: 225 MG, DAILY (TAKES 150MG AND 75MG TOGETHER)
     Route: 048
  3. EFFEXOR XR [Suspect]
     Active Substance: VENLAFAXINE HYDROCHLORIDE
     Dosage: 150 MG, DAILY (BEST IF TAKEN WITH FOOD, SWALLOW WHOLE)
     Route: 048

REACTIONS (2)
  - Feeling abnormal [Unknown]
  - Mental disorder [Not Recovered/Not Resolved]
